FAERS Safety Report 20369837 (Version 4)
Quarter: 2024Q2

REPORT INFORMATION
  Report Type: Spontaneous
  Country: JP (occurrence: JP)
  Receive Date: 20220124
  Receipt Date: 20240613
  Transmission Date: 20240716
  Serious: Yes (Other)
  Sender: FDA-Public Use
  Company Number: JP-NAPPMUNDI-GBR-2022-0094362

PATIENT
  Age: 36 Year
  Sex: Female

DRUGS (5)
  1. OXYCODONE [Suspect]
     Active Substance: OXYCODONE\OXYCODONE HYDROCHLORIDE
     Indication: Cancer pain
     Dosage: 80 MG, DAILY
     Route: 042
  2. SYMPROIC [Suspect]
     Active Substance: NALDEMEDINE
     Indication: Constipation
     Dosage: 0.2 MG, DAILY
     Route: 048
  3. IRINOTECAN [Concomitant]
     Active Substance: IRINOTECAN
     Indication: Metastases to rectum
     Dosage: UNK
     Route: 065
  4. NEDAPLATIN [Concomitant]
     Active Substance: NEDAPLATIN
     Indication: Metastases to rectum
     Dosage: UNK
     Route: 065
  5. MAGNESIUM OXIDE [Concomitant]
     Active Substance: MAGNESIUM OXIDE
     Indication: Product used for unknown indication
     Dosage: 750 MILLIGRAM, DAILY
     Route: 065

REACTIONS (16)
  - Delirium [Recovered/Resolved]
  - Drug withdrawal syndrome [Recovered/Resolved]
  - Hallucination [Recovered/Resolved]
  - Tachycardia [Recovered/Resolved]
  - Lacrimation increased [Recovered/Resolved]
  - Rhinorrhoea [Recovered/Resolved]
  - Psychomotor hyperactivity [Recovered/Resolved]
  - Pyrexia [Recovered/Resolved]
  - Disorientation [Recovered/Resolved]
  - Aggression [Recovered/Resolved]
  - Hyperhidrosis [Recovered/Resolved]
  - Diarrhoea [Recovered/Resolved]
  - Insomnia [Recovered/Resolved]
  - Tremor [Recovered/Resolved]
  - Constipation [Unknown]
  - Abdominal pain [Unknown]
